FAERS Safety Report 4300630-1 (Version None)
Quarter: 2004Q1

REPORT INFORMATION
  Report Type: 
  Country: None (occurrence: None)
  Receive Date: 20040209
  Receipt Date: 20040121
  Transmission Date: 20041129
  Serious: Yes (Death)
  Sender: FDA-Public Use
  Company Number: 234037

PATIENT
  Age: 55 Year
  Sex: Male

DRUGS (7)
  1. NOVOSEVEN [Suspect]
     Indication: HEPATIC FAILURE
     Dosage: 3 DOSES, INTRAVENOUS
     Route: 042
  2. OCTREOTIDE ACETATE [Concomitant]
  3. VERSED (MIDAZOLAM HYDROCHLOIRDE) [Concomitant]
  4. SPIRONOLACTONE [Concomitant]
  5. LASIX [Concomitant]
  6. LACTULOSE [Concomitant]
  7. FENTANYL [Concomitant]

REACTIONS (6)
  - CARDIO-RESPIRATORY ARREST [None]
  - GASTROINTESTINAL HAEMORRHAGE [None]
  - HYPOXIA [None]
  - PLATELET FUNCTION TEST ABNORMAL [None]
  - PULMONARY HAEMORRHAGE [None]
  - THERAPEUTIC RESPONSE DECREASED [None]
